FAERS Safety Report 22223828 (Version 3)
Quarter: 2023Q2

REPORT INFORMATION
  Report Type: Spontaneous
  Country: US (occurrence: US)
  Receive Date: 20230418
  Receipt Date: 20230504
  Transmission Date: 20230721
  Serious: Yes (Death, Other)
  Sender: FDA-Public Use
  Company Number: US-LUPIN PHARMACEUTICALS INC.-2023-02921

PATIENT

DRUGS (1)
  1. LEVOTHYROXINE SODIUM [Suspect]
     Active Substance: LEVOTHYROXINE SODIUM
     Indication: Thyroid disorder
     Dosage: 75 MICROGRAM, QD
     Route: 065
     Dates: start: 20220706

REACTIONS (15)
  - Pulmonary artery aneurysm [Fatal]
  - Aneurysm ruptured [Fatal]
  - Cardiac tamponade [Fatal]
  - Pulmonary hypertension [Unknown]
  - Headache [Unknown]
  - Chest pain [Unknown]
  - Insomnia [Unknown]
  - Malaise [Unknown]
  - Aneurysm [Unknown]
  - Lethargy [Unknown]
  - Bedridden [Unknown]
  - Product substitution issue [Unknown]
  - Back pain [Unknown]
  - Oropharyngeal pain [Unknown]
  - Dyspepsia [Unknown]

NARRATIVE: CASE EVENT DATE: 20220706
